FAERS Safety Report 5051420-6 (Version None)
Quarter: 2006Q3

REPORT INFORMATION
  Report Type: 
  Country: None (occurrence: None)
  Receive Date: 20060714
  Receipt Date: 20050928
  Transmission Date: 20061208
  Serious: Yes (Hospitalization, Disabling)
  Sender: FDA-Public Use
  Company Number: US-ROCHE-419573

PATIENT
  Age: 13 Year
  Sex: Male
  Weight: 52.2 kg

DRUGS (4)
  1. ACCUTANE [Suspect]
     Route: 065
     Dates: start: 19940815, end: 19940915
  2. ACCUTANE [Suspect]
     Route: 065
     Dates: start: 19980115, end: 19980615
  3. ACCUTANE [Suspect]
     Route: 065
     Dates: start: 19980815, end: 19990915
  4. ACCUTANE [Suspect]
     Route: 065
     Dates: start: 20021115, end: 20030415

REACTIONS (51)
  - ABDOMINAL PAIN [None]
  - ANAEMIA [None]
  - ANOREXIA [None]
  - ANXIETY [None]
  - ASTHENIA [None]
  - BREAST MASS [None]
  - CHEST PAIN [None]
  - COLITIS [None]
  - COLITIS ULCERATIVE [None]
  - CROHN'S DISEASE [None]
  - DEPRESSION [None]
  - DIZZINESS [None]
  - EMOTIONAL DISTRESS [None]
  - ERYTHEMA [None]
  - FAECAL FAT INCREASED [None]
  - FATIGUE [None]
  - GASTRIC DISORDER [None]
  - GASTROINTESTINAL DISORDER [None]
  - GYNAECOMASTIA [None]
  - HAEMATOCRIT DECREASED [None]
  - HAEMOGLOBIN DECREASED [None]
  - HEPATIC ENZYME INCREASED [None]
  - IMPAIRED WORK ABILITY [None]
  - INFLAMMATORY BOWEL DISEASE [None]
  - INJURY [None]
  - INTESTINAL HAEMORRHAGE [None]
  - IRRITABLE BOWEL SYNDROME [None]
  - MONOCYTE PERCENTAGE INCREASED [None]
  - NASOPHARYNGITIS [None]
  - NAUSEA [None]
  - OCCULT BLOOD POSITIVE [None]
  - PALLOR [None]
  - PANIC ATTACK [None]
  - PHARYNGEAL ULCERATION [None]
  - PHARYNGITIS [None]
  - PHARYNGOLARYNGEAL PAIN [None]
  - PRODUCTIVE COUGH [None]
  - PSEUDOPOLYP [None]
  - PYREXIA [None]
  - RECTAL HAEMORRHAGE [None]
  - RED BLOOD CELL SEDIMENTATION RATE INCREASED [None]
  - SINUSITIS [None]
  - SKIN LESION [None]
  - SOMNOLENCE [None]
  - SWELLING [None]
  - THROAT LESION [None]
  - TOOTH ABSCESS [None]
  - ULCER [None]
  - URTICARIA [None]
  - WEIGHT DECREASED [None]
  - WHEEZING [None]
